FAERS Safety Report 4942712-7 (Version None)
Quarter: 2006Q1

REPORT INFORMATION
  Report Type: 
  Country: None (occurrence: None)
  Receive Date: 20060314
  Receipt Date: 20050927
  Transmission Date: 20060701
  Serious: Yes (Hospitalization)
  Sender: FDA-Public Use
  Company Number: US-KINGPHARMUSA00001-K200501263

PATIENT
  Age: 72 Year
  Sex: Female

DRUGS (1)
  1. NEOSPORIN G.U. IRRIGANT STERILE [Suspect]
     Indication: BLADDER IRRIGATION
     Dosage: 1 AMPULE, SINGLE
     Route: 042
     Dates: start: 20050926, end: 20050926

REACTIONS (1)
  - INCORRECT ROUTE OF DRUG ADMINISTRATION [None]
